FAERS Safety Report 4785356-2 (Version None)
Quarter: 2005Q3

REPORT INFORMATION
  Report Type: 
  Country: None (occurrence: None)
  Receive Date: 20050914
  Receipt Date: 20050322
  Transmission Date: 20060218
  Serious: Yes (Other)
  Sender: FDA-Public Use
  Company Number: 163-20785-05030608

PATIENT
  Age: 54 Year
  Sex: Male

DRUGS (2)
  1. THALOMID [Suspect]
     Indication: MULTIPLE MYELOMA
     Dosage: 100 MG, QD, ORAL; REDUCED DOSE, ORAL
     Route: 048
     Dates: start: 20050101, end: 20050101
  2. THALOMID [Suspect]
     Indication: MULTIPLE MYELOMA
     Dosage: 100 MG, QD, ORAL; REDUCED DOSE, ORAL
     Route: 048
     Dates: start: 20050119, end: 20050101

REACTIONS (2)
  - CHEST PAIN [None]
  - PALPITATIONS [None]
